FAERS Safety Report 24151379 (Version 1)
Quarter: 2024Q3

REPORT INFORMATION
  Report Type: Other
  Country: GB (occurrence: GB)
  Receive Date: 20240730
  Receipt Date: 20240730
  Transmission Date: 20241016
  Serious: Yes (Other)
  Sender: MACLEODS
  Company Number: None

PATIENT

DRUGS (4)
  1. TAMSULOSIN [Suspect]
     Active Substance: TAMSULOSIN
     Indication: Urinary retention
     Dosage: 5MG DAILY (SPECIFIC SUBSTANCE SUB7202)
     Route: 065
     Dates: start: 20240501
  2. SOLIFENACIN [Suspect]
     Active Substance: SOLIFENACIN
     Indication: Urinary retention
     Dosage: 5MG DAILY, (SPECIFIC SUBSTANCE SUB8350)
     Route: 065
     Dates: start: 20240501
  3. LEVOTHYROXINE [Concomitant]
     Active Substance: LEVOTHYROXINE\LEVOTHYROXINE SODIUM
     Indication: Hypothyroidism
  4. LIOTHYRONINE [Concomitant]
     Active Substance: LIOTHYRONINE
     Indication: Hypothyroidism

REACTIONS (1)
  - Muscular weakness [Not Recovered/Not Resolved]

NARRATIVE: CASE EVENT DATE: 20240705
